FAERS Safety Report 5783116-7 (Version None)
Quarter: 2008Q2

REPORT INFORMATION
  Report Type: 
  Country: None (occurrence: None)
  Receive Date: 20080624
  Receipt Date: 20080616
  Transmission Date: 20081010
  Serious: Yes (Hospitalization)
  Sender: FDA-Public Use
  Company Number: JP-JNJFOC-20080502091

PATIENT
  Sex: Female
  Weight: 60 kg

DRUGS (16)
  1. REMICADE [Suspect]
     Dosage: TOTAL OF SEVEN INFUSIONS RECEIVED, DATES UNSPECIFIED.
     Route: 042
  2. REMICADE [Suspect]
     Dosage: TOTAL OF SEVEN INFUSIONS RECEIVED, DATES UNSPECIFIED.
     Route: 042
  3. REMICADE [Suspect]
     Dosage: TOTAL OF SEVEN INFUSIONS RECEIVED, DATES UNSPECIFIED.
     Route: 042
  4. REMICADE [Suspect]
     Dosage: TOTAL OF SEVEN INFUSIONS RECEIVED, DATES UNSPECIFIED.
     Route: 042
  5. REMICADE [Suspect]
     Dosage: TOTAL OF SEVEN INFUSIONS RECEIVED, DATES UNSPECIFIED.
     Route: 042
  6. REMICADE [Suspect]
     Dosage: TOTAL OF SEVEN INFUSIONS RECEIVED, DATES UNSPECIFIED.
     Route: 042
  7. REMICADE [Suspect]
     Dosage: TOTAL OF SEVEN INFUSIONS RECEIVED, DATES UNSPECIFIED.
     Route: 042
  8. REMICADE [Suspect]
     Dosage: TOTAL OF SEVEN INFUSIONS RECEIVED, DATES UNSPECIFIED.
     Route: 042
  9. REMICADE [Suspect]
     Indication: RHEUMATOID ARTHRITIS
     Dosage: TOTAL OF SEVEN INFUSIONS RECEIVED, DATES UNSPECIFIED.
     Route: 042
  10. RHEUMATREX [Concomitant]
     Indication: RHEUMATOID ARTHRITIS
     Route: 048
  11. MUCOSTA [Concomitant]
     Route: 048
  12. MOBIC [Concomitant]
     Route: 048
  13. PREDNISONE TAB [Concomitant]
     Route: 048
  14. ALENDRONATE SODIUM [Concomitant]
     Route: 048
  15. LIPITOR [Concomitant]
     Route: 048
  16. FOLIAMIN [Concomitant]
     Route: 048

REACTIONS (1)
  - HERPES ZOSTER [None]
